FAERS Safety Report 6453198-8 (Version None)
Quarter: 2009Q4

REPORT INFORMATION
  Report Type: 
  Country: None (occurrence: None)
  Receive Date: 20091123
  Receipt Date: 20091123
  Transmission Date: 20100525
  Serious: Yes (Hospitalization)
  Sender: FDA-Public Use
  Company Number: None

PATIENT
  Sex: Female
  Weight: 52.3 kg

DRUGS (2)
  1. CISPLATIN [Suspect]
     Dosage: 112 MG
     Dates: start: 20091012
  2. TAXOTERE [Suspect]
     Dosage: 112 MG
     Dates: start: 20091012

REACTIONS (6)
  - ABDOMINAL PAIN [None]
  - ASTHENIA [None]
  - DEVICE RELATED INFECTION [None]
  - HYPOKALAEMIA [None]
  - LISTLESS [None]
  - PNEUMONIA [None]
